FAERS Safety Report 19752387 (Version 1)
Quarter: 2021Q3

REPORT INFORMATION
  Report Type: Spontaneous
  Country: US (occurrence: US)
  Receive Date: 20210826
  Receipt Date: 20210826
  Transmission Date: 20211014
  Serious: Yes (Other)
  Sender: FDA-Public Use
  Company Number: US-ASTRAZENECA-2021A608310

PATIENT
  Age: 67 Year
  Sex: Male
  Weight: 74.4 kg

DRUGS (10)
  1. BRILINTA [Suspect]
     Active Substance: TICAGRELOR
     Indication: CEREBROVASCULAR ACCIDENT
     Route: 048
     Dates: start: 20200225, end: 20210215
  2. BRILINTA [Suspect]
     Active Substance: TICAGRELOR
     Indication: TRANSIENT ISCHAEMIC ATTACK
     Route: 048
     Dates: start: 20200225, end: 20210215
  3. BRILINTA [Suspect]
     Active Substance: TICAGRELOR
     Indication: CEREBROVASCULAR ACCIDENT
     Route: 048
     Dates: start: 20210609
  4. FISH OIL [Concomitant]
     Active Substance: FISH OIL
  5. BRILINTA [Suspect]
     Active Substance: TICAGRELOR
     Indication: CEREBROVASCULAR ACCIDENT
     Route: 048
     Dates: start: 20210216, end: 20210608
  6. BRILINTA [Suspect]
     Active Substance: TICAGRELOR
     Indication: TRANSIENT ISCHAEMIC ATTACK
     Route: 048
     Dates: start: 20210609
  7. ROSUVASTATIN. [Suspect]
     Active Substance: ROSUVASTATIN
     Route: 048
  8. ASPIRIN. [Concomitant]
     Active Substance: ASPIRIN
  9. BRILINTA [Suspect]
     Active Substance: TICAGRELOR
     Indication: TRANSIENT ISCHAEMIC ATTACK
     Route: 048
     Dates: start: 20210216, end: 20210608
  10. FOLIC ACID. [Concomitant]
     Active Substance: FOLIC ACID

REACTIONS (1)
  - Transient ischaemic attack [Recovered/Resolved]
